FAERS Safety Report 6438462-0 (Version None)
Quarter: 2009Q4

REPORT INFORMATION
  Report Type: 
  Country: None (occurrence: None)
  Receive Date: 20091110
  Receipt Date: 20091028
  Transmission Date: 20100525
  Serious: Yes (Other)
  Sender: FDA-Public Use
  Company Number: SPV1-2009-02157

PATIENT
  Age: 11 Year
  Sex: Male
  Weight: 22.3 kg

DRUGS (8)
  1. ELAPRASE [Suspect]
     Indication: MUCOPOLYSACCHARIDOSIS II
     Dosage: 12 MG, 1X/WEEK, IV DRIP
     Route: 041
     Dates: start: 20070419
  2. ELAPRASE [Suspect]
  3. CHLORPHENIRAMINE MALEATE [Concomitant]
  4. ACETAMINOPHEN [Concomitant]
  5. RANITIDINE [Concomitant]
  6. ENALAPRIL MALEATE [Concomitant]
  7. ACETAMINOPHEN [Concomitant]
  8. EMLA [Concomitant]

REACTIONS (4)
  - DIARRHOEA [None]
  - INFUSION RELATED REACTION [None]
  - PYREXIA [None]
  - URTICARIA [None]
